FAERS Safety Report 18120155 (Version 2)
Quarter: 2020Q3

REPORT INFORMATION
  Report Type: Report from Study
  Country: BR (occurrence: BR)
  Receive Date: 20200806
  Receipt Date: 20200816
  Transmission Date: 20201103
  Serious: Yes (Death, Other)
  Sender: FDA-Public Use
  Company Number: NVSC2020BR215777

PATIENT
  Age: 70 Year
  Sex: Male

DRUGS (3)
  1. LEVOFLOXACIN. [Suspect]
     Active Substance: LEVOFLOXACIN
     Indication: PNEUMONIA
     Dosage: UNK
     Route: 065
  2. VOTRIENT [Suspect]
     Active Substance: PAZOPANIB HYDROCHLORIDE
     Indication: RENAL CANCER METASTATIC
     Dosage: 400 MG, Q12H
     Route: 065
     Dates: start: 20200708
  3. HEPARIN [Concomitant]
     Active Substance: HEPARIN SODIUM
     Indication: PRODUCT USED FOR UNKNOWN INDICATION
     Dosage: UNK
     Route: 065

REACTIONS (17)
  - Thrombosis [Unknown]
  - Pain [Unknown]
  - Lung disorder [Unknown]
  - Product dose omission issue [Unknown]
  - Cardio-respiratory arrest [Fatal]
  - Embolism [Unknown]
  - Pulmonary thrombosis [Unknown]
  - Therapeutic product effect decreased [Unknown]
  - General physical health deterioration [Unknown]
  - Metastasis [Unknown]
  - Fatigue [Unknown]
  - Chills [Not Recovered/Not Resolved]
  - Dyspnoea [Unknown]
  - Inappropriate schedule of product administration [Unknown]
  - Renal cancer [Fatal]
  - Pyrexia [Not Recovered/Not Resolved]
  - Asthenia [Not Recovered/Not Resolved]

NARRATIVE: CASE EVENT DATE: 20200708
